FAERS Safety Report 12308681 (Version 1)
Quarter: 2016Q2

REPORT INFORMATION
  Report Type: Spontaneous
  Country: US (occurrence: US)
  Receive Date: 20160427
  Receipt Date: 20160427
  Transmission Date: 20160815
  Serious: Yes (Other)
  Sender: FDA-Public Use
  Company Number: US-HOSPIRA-3256680

PATIENT
  Sex: Female

DRUGS (2)
  1. HCG [Suspect]
     Active Substance: GONADOTROPHIN, CHORIONIC
     Indication: WEIGHT CONTROL
     Route: 058
     Dates: start: 20160410, end: 20160412
  2. STERILE WATER [Suspect]
     Active Substance: WATER
     Indication: MEDICATION DILUTION
     Route: 058
     Dates: start: 20160410, end: 20160412

REACTIONS (1)
  - Angina pectoris [Not Recovered/Not Resolved]

NARRATIVE: CASE EVENT DATE: 20160412
